FAERS Safety Report 4582425-7 (Version None)
Quarter: 2005Q1

REPORT INFORMATION
  Report Type: 
  Country: None (occurrence: None)
  Receive Date: 20050127
  Receipt Date: 20040922
  Transmission Date: 20050727
  Serious: No
  Sender: FDA-Public Use
  Company Number: USA040979005

PATIENT
  Age: 11 Year
  Sex: Male
  Weight: 45 kg

DRUGS (4)
  1. STRATTERA [Suspect]
     Indication: ATTENTION DEFICIT/HYPERACTIVITY DISORDER
     Dosage: 40 MG/1 DAY
     Dates: start: 20030101
  2. CLONIDINE [Concomitant]
  3. BENADRYL [Concomitant]
  4. RISPERDAL [Concomitant]

REACTIONS (1)
  - TIC [None]
